FAERS Safety Report 16848269 (Version 1)
Quarter: 2019Q3

REPORT INFORMATION
  Report Type: Spontaneous
  Country: US (occurrence: US)
  Receive Date: 20190925
  Receipt Date: 20190925
  Transmission Date: 20191005
  Serious: No
  Sender: FDA-Public Use
  Company Number: US-AUROBINDO-AUR-APL-2019-020979

PATIENT

DRUGS (1)
  1. MONTELUKAST CHEWABLE TABLETS 5MG [Suspect]
     Active Substance: MONTELUKAST SODIUM
     Indication: HYPERSENSITIVITY
     Dosage: UNK, FOR FEW WEEKS
     Route: 065

REACTIONS (1)
  - Abnormal behaviour [Unknown]
